FAERS Safety Report 24996649 (Version 1)
Quarter: 2025Q1

REPORT INFORMATION
  Report Type: Spontaneous
  Country: CN (occurrence: CN)
  Receive Date: 20250221
  Receipt Date: 20250221
  Transmission Date: 20250408
  Serious: Yes (Hospitalization)
  Sender: MERCK SHARP & DOHME LLC
  Company Number: CN-009507513-2256493

PATIENT
  Age: 13 Year
  Sex: Male

DRUGS (6)
  1. CILASTATIN SODIUM\IMIPENEM [Suspect]
     Active Substance: CILASTATIN SODIUM\IMIPENEM
     Indication: Anti-infective therapy
     Dosage: 500 MG, Q6H
     Route: 041
     Dates: start: 20250114, end: 20250124
  2. IBUPROFEN [Suspect]
     Active Substance: IBUPROFEN
     Indication: Pyrexia
     Route: 048
     Dates: start: 20250121, end: 20250121
  3. VORICONAZOLE [Suspect]
     Active Substance: VORICONAZOLE
     Indication: Full blood count decreased
     Dosage: 0.3 G, Q12H
     Route: 041
     Dates: start: 20250122, end: 20250124
  4. CYCLOSPORINE [Suspect]
     Active Substance: CYCLOSPORINE
     Indication: Full blood count decreased
     Dosage: 1ML, Q12H
     Route: 048
     Dates: start: 20250115, end: 20250115
  5. CYCLOSPORINE [Suspect]
     Active Substance: CYCLOSPORINE
     Indication: Full blood count decreased
     Dosage: 100 MG, Q12H
     Route: 048
     Dates: start: 20250111, end: 20250115
  6. OSELTAMIVIR PHOSPHATE [Suspect]
     Active Substance: OSELTAMIVIR PHOSPHATE
     Indication: Full blood count decreased
     Dosage: 75 MG, Q12H
     Route: 048
     Dates: start: 20250121, end: 20250123

REACTIONS (3)
  - Rash erythematous [Recovering/Resolving]
  - Drug eruption [Recovering/Resolving]
  - Rash pruritic [Recovering/Resolving]

NARRATIVE: CASE EVENT DATE: 20250121
